FAERS Safety Report 4920612-6 (Version None)
Quarter: 2006Q1

REPORT INFORMATION
  Report Type: 
  Country: None (occurrence: None)
  Receive Date: 20060223
  Receipt Date: 20050802
  Transmission Date: 20060701
  Serious: Yes (Other)
  Sender: FDA-Public Use
  Company Number: FI-ROCHE-413325

PATIENT
  Age: 68 Year
  Sex: Male

DRUGS (2)
  1. XELODA [Suspect]
     Dosage: 2 + 2.5 GRAM. TAKEN FOR FIRST TWO WEEKS OF A THREE WEEK CYCLE.
     Route: 048
     Dates: start: 20050418, end: 20050724
  2. ORIGLUCON [Concomitant]
     Indication: DIABETES MELLITUS
     Dosage: REPORTED TO HAVE BEEN STARTED A LONG TIME AGO.
     Route: 048

REACTIONS (1)
  - DYSLIPIDAEMIA [None]
